FAERS Safety Report 8583643-3 (Version None)
Quarter: 2012Q3

REPORT INFORMATION
  Report Type: 
  Country: None (occurrence: None)
  Receive Date: 20120809
  Receipt Date: 20120806
  Transmission Date: 20120928
  Serious: Yes (Hospitalization, Other)
  Sender: FDA-Public Use
  Company Number: US-009507513-2011SP030606

PATIENT

DRUGS (4)
  1. HEMP [Concomitant]
     Dosage: UNK UNK, TIW
  2. ALBUTEROL [Concomitant]
     Indication: ASTHMA EXERCISE INDUCED
     Dates: start: 19970101
  3. NUVARING [Suspect]
     Dates: start: 20090101, end: 20090701
  4. NUVARING [Suspect]
     Indication: CONTRACEPTION
     Dates: start: 20060101, end: 20080801

REACTIONS (8)
  - ANAEMIA [None]
  - EMOTIONAL DISORDER [None]
  - MIGRAINE [None]
  - CAVERNOUS SINUS THROMBOSIS [None]
  - INAPPROPRIATE SCHEDULE OF DRUG ADMINISTRATION [None]
  - CHLAMYDIAL INFECTION [None]
  - DEEP VEIN THROMBOSIS [None]
  - VAGINITIS BACTERIAL [None]
